FAERS Safety Report 24111028 (Version 2)
Quarter: 2024Q4

REPORT INFORMATION
  Report Type: Spontaneous
  Country: FR (occurrence: FR)
  Receive Date: 20240718
  Receipt Date: 20241010
  Transmission Date: 20250115
  Serious: Yes (Hospitalization, Other)
  Sender: MERCK
  Company Number: None

PATIENT
  Age: 93 Year
  Sex: Female
  Weight: 44.7 kg

DRUGS (1)
  1. CILASTATIN SODIUM\IMIPENEM [Suspect]
     Active Substance: CILASTATIN SODIUM\IMIPENEM
     Indication: Liver abscess
     Dosage: 750MG 3/DAY THEN 1G/6H (06/19/2024), STRENGTH 500 MG/500 MG
     Route: 042
     Dates: start: 20240531, end: 20240621

REACTIONS (1)
  - Clostridial infection [Recovered/Resolved]

NARRATIVE: CASE EVENT DATE: 20240605
